FAERS Safety Report 6386141-0 (Version None)
Quarter: 2009Q4

REPORT INFORMATION
  Report Type: 
  Country: None (occurrence: None)
  Receive Date: 20091002
  Receipt Date: 20081230
  Transmission Date: 20100525
  Serious: No
  Sender: FDA-Public Use
  Company Number: US-ASTRAZENECA-2008UW28924

PATIENT
  Age: 66 Year
  Sex: Female

DRUGS (3)
  1. ARIMIDEX [Suspect]
     Indication: BREAST CANCER METASTATIC
     Route: 048
  2. OXYCONTIN [Concomitant]
  3. LOTREL [Concomitant]

REACTIONS (4)
  - METASTATIC NEOPLASM [None]
  - PAIN [None]
  - RIB FRACTURE [None]
  - TUMOUR MARKER INCREASED [None]
